FAERS Safety Report 10589660 (Version 3)
Quarter: 2015Q2

REPORT INFORMATION
  Report Type: Spontaneous
  Country: FI (occurrence: FI)
  Receive Date: 20141118
  Receipt Date: 20150507
  Transmission Date: 20150821
  Serious: Yes (Other)
  Sender: FDA-Public Use
  Company Number: PHHY2014FI148056

PATIENT
  Sex: Male

DRUGS (2)
  1. NICOTINIC ACID [Concomitant]
     Active Substance: NIACIN
     Indication: MULTIPLE SCLEROSIS
     Dosage: DAILY
     Route: 065
  2. GILENYA [Suspect]
     Active Substance: FINGOLIMOD HYDROCHLORIDE
     Indication: MULTIPLE SCLEROSIS
     Route: 065
     Dates: start: 201410

REACTIONS (9)
  - Diplopia [Recovered/Resolved]
  - Drug ineffective [Unknown]
  - Balance disorder [Recovering/Resolving]
  - Dysarthria [Recovering/Resolving]
  - Fear [Recovering/Resolving]
  - Heart rate decreased [Recovering/Resolving]
  - Arrhythmia [Recovering/Resolving]
  - Feeling abnormal [Recovering/Resolving]
  - Asthenia [Recovering/Resolving]

NARRATIVE: CASE EVENT DATE: 2014
